FAERS Safety Report 19264495 (Version 1)
Quarter: 2021Q2

REPORT INFORMATION
  Report Type: Spontaneous
  Country: US (occurrence: US)
  Receive Date: 20210517
  Receipt Date: 20210517
  Transmission Date: 20210717
  Serious: No
  Sender: FDA-Public Use
  Company Number: None

PATIENT
  Age: 67 Year
  Sex: Female
  Weight: 72.57 kg

DRUGS (3)
  1. IRON TABLETS ^PREMIUM HEALTH^ BRAND [Concomitant]
  2. AMOXICILLIN. [Suspect]
     Active Substance: AMOXICILLIN
     Indication: INFECTION
     Dosage: ?          QUANTITY:30 DF DOSAGE FORM;?
     Route: 048
     Dates: start: 20201218, end: 20201224
  3. AMOXICILLIN. [Suspect]
     Active Substance: AMOXICILLIN
     Indication: TOOTHACHE
     Dosage: ?          QUANTITY:30 DF DOSAGE FORM;?
     Route: 048
     Dates: start: 20201218, end: 20201224

REACTIONS (6)
  - Urticaria [None]
  - Headache [None]
  - Hypersomnia [None]
  - Nasopharyngitis [None]
  - Tooth extraction [None]
  - Decreased appetite [None]

NARRATIVE: CASE EVENT DATE: 20201218
